FAERS Safety Report 22390161 (Version 1)
Quarter: 2023Q2

REPORT INFORMATION
  Report Type: Spontaneous
  Country: MX (occurrence: MX)
  Receive Date: 20230531
  Receipt Date: 20230531
  Transmission Date: 20230722
  Serious: Yes (Hospitalization)
  Sender: FDA-Public Use
  Company Number: MX-BAYER-2023A075896

PATIENT
  Age: 44 Year
  Sex: Male

DRUGS (2)
  1. LAROTRECTINIB [Suspect]
     Active Substance: LAROTRECTINIB
     Indication: Glioblastoma
     Dosage: 100 MG, BID
     Route: 048
     Dates: start: 20230302, end: 20230325
  2. LAROTRECTINIB [Suspect]
     Active Substance: LAROTRECTINIB
     Indication: Glioblastoma
     Dosage: 100 MG, BID
     Route: 048
     Dates: start: 20230508

REACTIONS (1)
  - Cerebral microinfarction [None]

NARRATIVE: CASE EVENT DATE: 20230325
